FAERS Safety Report 10205652 (Version 2)
Quarter: 2015Q3

REPORT INFORMATION
  Report Type: Report from Study
  Country: CA (occurrence: CA)
  Receive Date: 20140529
  Receipt Date: 20150828
  Transmission Date: 20151125
  Serious: Yes (Other)
  Sender: FDA-Public Use
  Company Number: CA-AMGEN INC.-CANSP2014038218

PATIENT
  Age: 68 Year
  Sex: Female

DRUGS (3)
  1. DILTIAZEM [Concomitant]
     Active Substance: DILTIAZEM
     Indication: CARDIAC DISORDER
  2. CELEBREX [Concomitant]
     Active Substance: CELECOXIB
     Indication: PAIN
  3. PROLIA [Suspect]
     Active Substance: DENOSUMAB
     Indication: OSTEOPOROSIS POSTMENOPAUSAL
     Dosage: 60 MG, UNK
     Route: 065
     Dates: start: 20140318

REACTIONS (25)
  - Opisthotonus [Unknown]
  - Chest injury [Unknown]
  - Face injury [Unknown]
  - Epicondylitis [Unknown]
  - Gait disturbance [Unknown]
  - Condition aggravated [Unknown]
  - Peripheral swelling [Unknown]
  - Arthralgia [Unknown]
  - Head injury [Unknown]
  - Osteoarthritis [Unknown]
  - Pelvic pain [Unknown]
  - Fall [Recovering/Resolving]
  - Pain [Unknown]
  - Mobility decreased [Unknown]
  - Haematoma [Unknown]
  - Visual impairment [Unknown]
  - Blood disorder [Unknown]
  - Intervertebral disc compression [Unknown]
  - Joint injury [Unknown]
  - Post procedural complication [Unknown]
  - Fracture [Unknown]
  - Impaired driving ability [Unknown]
  - Spinal deformity [Unknown]
  - Limb injury [Unknown]
  - Back pain [Unknown]
